FAERS Safety Report 6452918-6 (Version None)
Quarter: 2009Q4

REPORT INFORMATION
  Report Type: 
  Country: None (occurrence: None)
  Receive Date: 20091124
  Receipt Date: 20091118
  Transmission Date: 20100525
  Serious: Yes (Other)
  Sender: FDA-Public Use
  Company Number: JP-BAYER-200914175BYL

PATIENT
  Age: 38 Year
  Sex: Male

DRUGS (1)
  1. LEVITRA [Suspect]
     Indication: ERECTILE DYSFUNCTION
     Route: 048
     Dates: start: 20091028

REACTIONS (2)
  - CONVULSION [None]
  - DYSPNOEA [None]
